FAERS Safety Report 9711813 (Version 1)
Quarter: 2013Q4

REPORT INFORMATION
  Report Type: Spontaneous
  Country: US (occurrence: US)
  Receive Date: 20131126
  Receipt Date: 20131126
  Transmission Date: 20140711
  Serious: No
  Sender: FDA-Public Use
  Company Number: US-BRISTOL-MYERS SQUIBB COMPANY-19111731

PATIENT
  Age: 62 Year
  Sex: Male
  Weight: 80.72 kg

DRUGS (4)
  1. BYDUREON [Suspect]
     Route: 058
     Dates: start: 20130524, end: 20130712
  2. METFORMIN [Concomitant]
  3. JANUVIA [Concomitant]
  4. GLYBURIDE [Concomitant]

REACTIONS (1)
  - Injection site swelling [Not Recovered/Not Resolved]
